FAERS Safety Report 24544832 (Version 1)
Quarter: 2024Q4

REPORT INFORMATION
  Report Type: Spontaneous
  Country: KR (occurrence: KR)
  Receive Date: 20241024
  Receipt Date: 20241024
  Transmission Date: 20250115
  Serious: Yes (Other)
  Sender: MYLAN
  Company Number: KR-MYLANLABS-2024M1095593

PATIENT
  Age: 67 Year
  Sex: Male

DRUGS (8)
  1. ETOPOSIDE [Suspect]
     Active Substance: ETOPOSIDE
     Indication: Neuroendocrine carcinoma
     Dosage: UNK UNK, CYCLE, 2 CYCLES WITH UNSPECIFIED PLATINUM-COMPLEXES
     Route: 065
  2. ETOPOSIDE [Suspect]
     Active Substance: ETOPOSIDE
     Indication: Bile duct cancer stage II
  3. FLUOROURACIL [Suspect]
     Active Substance: FLUOROURACIL
     Indication: Neuroendocrine carcinoma
     Dosage: UNK, CYCLE, 9?CYCLES WITH OXALIPLATIN
     Route: 065
  4. FLUOROURACIL [Suspect]
     Active Substance: FLUOROURACIL
     Indication: Bile duct cancer stage II
     Dosage: UNK, CYCLE, 3?CYCLES WITH IRINOTECAN
     Route: 065
  5. OXALIPLATIN [Suspect]
     Active Substance: OXALIPLATIN
     Indication: Neuroendocrine carcinoma
     Dosage: UNK, CYCLE, 9?CYCLES WITH FLUOROURACIL
     Route: 065
  6. OXALIPLATIN [Suspect]
     Active Substance: OXALIPLATIN
     Indication: Bile duct cancer stage II
  7. IRINOTECAN [Suspect]
     Active Substance: IRINOTECAN
     Indication: Neuroendocrine carcinoma
     Dosage: UNK, CYCLE,  3?CYCLES WITH FLUOROURACIL
     Route: 065
  8. IRINOTECAN [Suspect]
     Active Substance: IRINOTECAN
     Indication: Bile duct cancer stage II

REACTIONS (2)
  - Drug ineffective [Unknown]
  - Disease progression [Unknown]
